FAERS Safety Report 9496297 (Version 1)
Quarter: 2013Q3

REPORT INFORMATION
  Report Type: Spontaneous
  Country: US (occurrence: US)
  Receive Date: 20130904
  Receipt Date: 20130904
  Transmission Date: 20140515
  Serious: Yes (Hospitalization)
  Sender: FDA-Public Use
  Company Number: US-BAYER-2013-106605

PATIENT
  Age: 35 Year
  Sex: Female

DRUGS (5)
  1. YASMIN [Suspect]
  2. METFORMIN [Concomitant]
     Indication: OBESITY
     Dosage: UNK
     Dates: start: 20071229
  3. METFORMIN [Concomitant]
     Indication: POLYCYSTIC OVARIES
  4. GLUCOPHAGE [Concomitant]
  5. IBUPROFEN [Concomitant]

REACTIONS (1)
  - Pulmonary embolism [None]
